FAERS Safety Report 8591815-7 (Version None)
Quarter: 2012Q3

REPORT INFORMATION
  Report Type: 
  Country: None (occurrence: None)
  Receive Date: 20120814
  Receipt Date: 20120809
  Transmission Date: 20120928
  Serious: Yes (Hospitalization, Other)
  Sender: FDA-Public Use
  Company Number: PHHY2011VE105784

PATIENT
  Sex: Female

DRUGS (7)
  1. ZOLEDRONOC ACID [Suspect]
     Dosage: 5 MG, EACH 6 MONTHS
     Route: 042
     Dates: start: 20120501
  2. ARAVA [Concomitant]
     Indication: ARTHRITIS
     Dosage: ONE TABLET DAILY
  3. ZOLEDRONOC ACID [Suspect]
     Dosage: 5 MG, EACH 6 MONTHS
     Route: 042
     Dates: start: 20110501
  4. FOLIC ACID [Concomitant]
     Indication: ARTHRITIS
     Dosage: DAILY
  5. CALCORT [Concomitant]
     Indication: ARTHRITIS
     Dosage: ONE TABLET DAILY
  6. ZOLEDRONOC ACID [Suspect]
     Dosage: 5 MG, EACH 6 MONTHS
     Route: 042
     Dates: start: 20101001
  7. ZOLEDRONOC ACID [Suspect]
     Indication: OSTEOPOROSIS
     Dosage: 5 MG, EACH 6 MONTHS
     Route: 042
     Dates: start: 20100501

REACTIONS (3)
  - OVERDOSE [None]
  - STAPHYLOCOCCAL INFECTION [None]
  - INAPPROPRIATE SCHEDULE OF DRUG ADMINISTRATION [None]
